FAERS Safety Report 8198040-2 (Version None)
Quarter: 2012Q1

REPORT INFORMATION
  Report Type: 
  Country: None (occurrence: None)
  Receive Date: 20120309
  Receipt Date: 20120228
  Transmission Date: 20120608
  Serious: Yes (Other)
  Sender: FDA-Public Use
  Company Number: US-JNJFOC-20120301179

PATIENT
  Sex: Female
  Weight: 63.5 kg

DRUGS (6)
  1. TRAZODONE HCL [Concomitant]
     Route: 048
  2. INVEGA SUSTENNA [Suspect]
     Indication: MAJOR DEPRESSION
     Route: 030
     Dates: start: 20120101, end: 20120120
  3. NITROFURANTOIN [Concomitant]
     Route: 048
  4. INVEGA SUSTENNA [Suspect]
     Indication: SCHIZOPHRENIA
     Route: 030
     Dates: start: 20120101, end: 20120120
  5. CELEXA [Concomitant]
     Route: 048
  6. LORAZEPAM [Concomitant]
     Route: 048

REACTIONS (9)
  - ARTHRALGIA [None]
  - TACHYCARDIA [None]
  - MUSCULOSKELETAL STIFFNESS [None]
  - BREAST DISCHARGE [None]
  - BREAST ENLARGEMENT [None]
  - HYPERPROLACTINAEMIA [None]
  - DYSARTHRIA [None]
  - WEIGHT INCREASED [None]
  - MYALGIA [None]
